FAERS Safety Report 17863874 (Version 1)
Quarter: 2020Q2

REPORT INFORMATION
  Report Type: Spontaneous
  Country: US (occurrence: US)
  Receive Date: 20200605
  Receipt Date: 20200605
  Transmission Date: 20200714
  Serious: Yes (Hospitalization)
  Sender: FDA-Public Use
  Company Number: US-BEH-2020117840

PATIENT
  Sex: Male

DRUGS (2)
  1. HIZENTRA [Suspect]
     Active Substance: HUMAN IMMUNOGLOBULIN G
     Indication: ASTHMA
  2. HIZENTRA [Suspect]
     Active Substance: HUMAN IMMUNOGLOBULIN G
     Indication: HYPERLIPIDAEMIA
     Dosage: 10 GRAM, QW
     Route: 058
     Dates: start: 20191004

REACTIONS (3)
  - No adverse event [Unknown]
  - Cardiac disorder [Unknown]
  - Product use in unapproved indication [Unknown]
